FAERS Safety Report 20019195 (Version 8)
Quarter: 2022Q4

REPORT INFORMATION
  Report Type: Report from Study
  Country: US (occurrence: None)
  Receive Date: 20211101
  Receipt Date: 20221128
  Transmission Date: 20230113
  Serious: Yes (Hospitalization)
  Sender: FDA-Public Use
  Company Number: US-ROCHE-2942633

PATIENT
  Age: 79 Year
  Sex: Male
  Weight: 93.3 kg

DRUGS (62)
  1. GLOFITAMAB [Suspect]
     Active Substance: GLOFITAMAB
     Indication: Non-Hodgkin^s lymphoma
     Dosage: MOST RECENT DOSE OF GLOFITAMAB WAS ADMIN ON 08/OCT/2021 AT 03:30 PM (30 MG) PRIOR TO SAE
     Route: 042
     Dates: start: 20210923
  2. OBINUTUZUMAB [Suspect]
     Active Substance: OBINUTUZUMAB
     Indication: Non-Hodgkin^s lymphoma
     Dosage: MOST  RECENT DOSE OF OBINUTUZUMAB WAS ADMIN ON 15/SEP/2021 FROM 12:00 PM TO 3:15 PM(1000 MG) PRIOR T
     Route: 042
     Dates: start: 20210827
  3. TOCILIZUMAB [Suspect]
     Active Substance: TOCILIZUMAB
     Indication: Cytokine release syndrome
     Dosage: MOST RECENT DOSE OF TOCILIZUMAB WAS ADMIN ON 25/SEP/2021 AT 08:39 AM (400 MG) PRIOR TO SAE
     Route: 042
     Dates: start: 20210925
  4. OXYGEN [Concomitant]
     Active Substance: OXYGEN
     Indication: Hypoxia
     Dosage: HIGH FLOW
     Dates: start: 20210924, end: 20210925
  5. OXYGEN [Concomitant]
     Active Substance: OXYGEN
     Indication: Cytokine release syndrome
     Dosage: 3 L/MIN
     Dates: start: 20210925, end: 20210925
  6. OXYGEN [Concomitant]
     Active Substance: OXYGEN
     Dosage: 3 L/MIN
     Dates: start: 20210926, end: 20210929
  7. ACYCLOVIR [Concomitant]
     Active Substance: ACYCLOVIR
     Dates: start: 20210922, end: 20211011
  8. ALBUMIN HUMAN [Concomitant]
     Active Substance: ALBUMIN HUMAN
     Dates: start: 20211004, end: 20211004
  9. ALBUMIN HUMAN [Concomitant]
     Active Substance: ALBUMIN HUMAN
     Dates: start: 20211005, end: 20211005
  10. ALLOPURINOL [Concomitant]
     Active Substance: ALLOPURINOL
     Dates: start: 20210824, end: 20211118
  11. ASPIRIN [Concomitant]
     Active Substance: ASPIRIN
     Dates: start: 20210823, end: 20211011
  12. ATORVASTATIN [Concomitant]
     Active Substance: ATORVASTATIN
     Dates: start: 20210823, end: 20211010
  13. AZITHROMYCIN [Concomitant]
     Active Substance: AZITHROMYCIN
     Route: 042
     Dates: start: 20210925, end: 20210925
  14. BUMETANIDE [Concomitant]
     Active Substance: BUMETANIDE
     Route: 042
     Dates: start: 20210925, end: 20210925
  15. ENOXAPARIN [Concomitant]
     Active Substance: ENOXAPARIN
     Dates: start: 20210924, end: 20210927
  16. FUROSEMIDE [Concomitant]
     Active Substance: FUROSEMIDE
     Route: 042
     Dates: start: 20210923, end: 20220417
  17. FUROSEMIDE [Concomitant]
     Active Substance: FUROSEMIDE
     Route: 042
     Dates: start: 20210924, end: 20210924
  18. FUROSEMIDE [Concomitant]
     Active Substance: FUROSEMIDE
     Route: 042
     Dates: start: 20210924, end: 20210927
  19. FUROSEMIDE [Concomitant]
     Active Substance: FUROSEMIDE
     Route: 042
     Dates: start: 20210929, end: 20210929
  20. FUROSEMIDE [Concomitant]
     Active Substance: FUROSEMIDE
     Route: 042
     Dates: start: 20210930, end: 20210930
  21. FUROSEMIDE [Concomitant]
     Active Substance: FUROSEMIDE
     Route: 042
     Dates: start: 20211001, end: 20211003
  22. SODIUM CHLORIDE [Concomitant]
     Active Substance: SODIUM CHLORIDE
     Dates: start: 20210924, end: 20210924
  23. SODIUM CHLORIDE [Concomitant]
     Active Substance: SODIUM CHLORIDE
     Dates: start: 20211004, end: 20211004
  24. SODIUM CHLORIDE [Concomitant]
     Active Substance: SODIUM CHLORIDE
     Dosage: NORMAL SALINE BOLUS
     Dates: start: 20210924, end: 20210924
  25. SODIUM CHLORIDE [Concomitant]
     Active Substance: SODIUM CHLORIDE
     Dosage: NORMAL SALINE BOLUS
     Dates: start: 20211008, end: 20211008
  26. IPRATROPIUM BROMIDE [Concomitant]
     Active Substance: IPRATROPIUM BROMIDE
     Indication: Wheezing
     Route: 055
     Dates: start: 20210924, end: 20210926
  27. IPRATROPIUM BROMIDE [Concomitant]
     Active Substance: IPRATROPIUM BROMIDE
     Indication: Dyspnoea
  28. LEVALBUTEROL [Concomitant]
     Active Substance: LEVALBUTEROL
     Indication: Dyspnoea
     Route: 055
     Dates: start: 20210924, end: 20210926
  29. LEVALBUTEROL [Concomitant]
     Active Substance: LEVALBUTEROL
     Indication: Wheezing
  30. LOSARTAN [Concomitant]
     Active Substance: LOSARTAN
     Dates: start: 20210921, end: 20210922
  31. MAGNESIUM SULFATE [Concomitant]
     Active Substance: MAGNESIUM SULFATE
     Dates: start: 20210923, end: 20210925
  32. METOPROLOL [Concomitant]
     Active Substance: METOPROLOL
     Route: 042
     Dates: start: 20210926, end: 20210927
  33. METOPROLOL [Concomitant]
     Active Substance: METOPROLOL
     Dates: start: 20211011, end: 20211011
  34. METOPROLOL [Concomitant]
     Active Substance: METOPROLOL
     Route: 042
     Dates: start: 20210924, end: 20210924
  35. METOPROLOL TARTRATE [Concomitant]
     Active Substance: METOPROLOL TARTRATE
     Dates: start: 20201001, end: 20211011
  36. PANTOPRAZOLE [Concomitant]
     Active Substance: PANTOPRAZOLE
     Dates: start: 20210923, end: 20210923
  37. PANTOPRAZOLE [Concomitant]
     Active Substance: PANTOPRAZOLE
     Dates: start: 20210927, end: 20211011
  38. PIPERACILLIN SODIUM\TAZOBACTAM SODIUM [Concomitant]
     Active Substance: PIPERACILLIN SODIUM\TAZOBACTAM SODIUM
     Route: 042
     Dates: start: 20210924, end: 20210927
  39. SEVELAMER [Concomitant]
     Active Substance: SEVELAMER
     Route: 048
     Dates: start: 20210927, end: 20210929
  40. TOCILIZUMAB [Concomitant]
     Active Substance: TOCILIZUMAB
     Indication: Cytokine release syndrome
     Route: 065
     Dates: start: 20210925, end: 20210925
  41. TOCILIZUMAB [Concomitant]
     Active Substance: TOCILIZUMAB
     Route: 042
     Dates: start: 20210925, end: 20210925
  42. VANCOMYCIN [Concomitant]
     Active Substance: VANCOMYCIN
     Route: 042
     Dates: start: 20210924, end: 20210924
  43. ZOLEDRONIC ACID [Concomitant]
     Active Substance: ZOLEDRONIC ACID
     Dates: start: 20210923, end: 20210923
  44. ZOLEDRONIC ACID [Concomitant]
     Active Substance: ZOLEDRONIC ACID
     Dates: start: 20211001, end: 20211001
  45. METHYLPREDNISOLONE [Concomitant]
     Active Substance: METHYLPREDNISOLONE
     Dates: start: 20210923, end: 20210923
  46. METHYLPREDNISOLONE [Concomitant]
     Active Substance: METHYLPREDNISOLONE
     Dates: start: 20211001, end: 20211001
  47. METHYLPREDNISOLONE [Concomitant]
     Active Substance: METHYLPREDNISOLONE
     Dates: start: 20211008, end: 20211008
  48. ACETAMINOPHEN [Concomitant]
     Active Substance: ACETAMINOPHEN
     Dates: start: 20211001, end: 20211001
  49. ACETAMINOPHEN [Concomitant]
     Active Substance: ACETAMINOPHEN
     Dates: start: 20210923, end: 20210923
  50. ACETAMINOPHEN [Concomitant]
     Active Substance: ACETAMINOPHEN
     Dates: start: 20211008, end: 20211008
  51. DIPHENHYDRAMINE [Concomitant]
     Active Substance: DIPHENHYDRAMINE
     Dates: start: 20211001, end: 20211001
  52. DIPHENHYDRAMINE [Concomitant]
     Active Substance: DIPHENHYDRAMINE
     Dates: start: 20210923, end: 20210923
  53. DIPHENHYDRAMINE [Concomitant]
     Active Substance: DIPHENHYDRAMINE
     Dates: start: 20211008, end: 20211008
  54. SODIUM BICARBONATE [Concomitant]
     Active Substance: SODIUM BICARBONATE
     Dosage: 75 MEQ
     Route: 042
     Dates: start: 20210924, end: 20210924
  55. IPRATROPIUM BROMIDE [Concomitant]
     Active Substance: IPRATROPIUM BROMIDE
     Dosage: INHALATION?SOLUTION
     Route: 055
     Dates: start: 20210924, end: 20210924
  56. FILGRASTIM [Concomitant]
     Active Substance: FILGRASTIM
     Indication: Neutropenia
     Dates: start: 20210914, end: 20210914
  57. MAGNESIUM CHLORIDE [Concomitant]
     Active Substance: MAGNESIUM CHLORIDE
     Dates: start: 20210823, end: 20220408
  58. SENNA [Concomitant]
     Active Substance: SENNA LEAF\SENNOSIDES\SENNOSIDES A AND B
     Indication: Constipation
     Dates: start: 20211011, end: 20220402
  59. CALCIUM [Concomitant]
     Active Substance: CALCIUM
     Dosage: STRENGTH
     Dates: start: 20210823, end: 20220413
  60. DOCUSATE SODIUM [Concomitant]
     Active Substance: DOCUSATE SODIUM
     Indication: Constipation
     Dates: start: 20211011, end: 20220202
  61. TORSEMIDE [Concomitant]
     Active Substance: TORSEMIDE
     Indication: Swelling
     Dates: start: 20211012, end: 20220308
  62. PREDNISONE [Concomitant]
     Active Substance: PREDNISONE
     Dates: start: 20210909, end: 20210916

REACTIONS (1)
  - Anaemia [Recovered/Resolved with Sequelae]

NARRATIVE: CASE EVENT DATE: 20211011
